FAERS Safety Report 7540966-4 (Version None)
Quarter: 2011Q2

REPORT INFORMATION
  Report Type: 
  Country: None (occurrence: None)
  Receive Date: 20110610
  Receipt Date: 20110531
  Transmission Date: 20111010
  Serious: Yes (Other)
  Sender: FDA-Public Use
  Company Number: US-JNJFOC-20110303472

PATIENT
  Age: 50 Year
  Sex: Female
  Weight: 53.52 kg

DRUGS (2)
  1. PEPCID AC [Suspect]
     Indication: VISION BLURRED
     Dosage: ONCE A DAY SINCE 1 YEAR
     Route: 048
     Dates: end: 20110519
  2. PEPCID AC [Suspect]
     Route: 048

REACTIONS (5)
  - OFF LABEL USE [None]
  - DRUG PRESCRIBING ERROR [None]
  - DRUG INEFFECTIVE FOR UNAPPROVED INDICATION [None]
  - BLINDNESS [None]
  - THERAPEUTIC RESPONSE UNEXPECTED [None]
